FAERS Safety Report 19020151 (Version 2)
Quarter: 2021Q2

REPORT INFORMATION
  Report Type: Spontaneous
  Country: GB (occurrence: GB)
  Receive Date: 20210317
  Receipt Date: 20210519
  Transmission Date: 20210717
  Serious: Yes (Death, Other)
  Sender: FDA-Public Use
  Company Number: GB-AMGEN-GBRSP2021039667

PATIENT

DRUGS (2)
  1. FILGRASTIM [Suspect]
     Active Substance: FILGRASTIM
     Indication: HAEMATOPOIETIC STEM CELL MOBILISATION
     Dosage: 10 MICROGRAM/KILOGRAM FOR 4 DAYS
     Route: 058
  2. PLERIXAFOR [Concomitant]
     Active Substance: PLERIXAFOR
     Dosage: 0.24 MILLIGRAM/KILOGRAM
     Route: 058

REACTIONS (15)
  - Abdominal pain [Unknown]
  - Hypomagnesaemia [Unknown]
  - Sepsis [Fatal]
  - Myocardial infarction [Unknown]
  - Injection site reaction [Unknown]
  - Leukocytosis [Unknown]
  - Hepatic failure [Fatal]
  - Injection site erythema [Unknown]
  - Disease recurrence [Fatal]
  - Cardiopulmonary failure [Fatal]
  - Engraft failure [Unknown]
  - Diarrhoea [Unknown]
  - Nausea [Unknown]
  - Plasma cell myeloma recurrent [Unknown]
  - Vomiting [Unknown]
